FAERS Safety Report 9061630 (Version 2)
Quarter: 2013Q1

REPORT INFORMATION
  Report Type: Spontaneous
  Country: GB (occurrence: GB)
  Receive Date: 20130204
  Receipt Date: 20130213
  Transmission Date: 20140127
  Serious: No
  Sender: FDA-Public Use
  Company Number: PHFR2013GB000984

PATIENT
  Age: 27 None
  Sex: Male

DRUGS (2)
  1. CLOZARIL [Suspect]
     Indication: SCHIZOPHRENIA
     Dosage: UNK UKN, UNK
     Route: 048
     Dates: start: 20120227
  2. CLOZARIL [Suspect]
     Dosage: 325 MG, UNK

REACTIONS (1)
  - Eosinophil count increased [Unknown]
